FAERS Safety Report 8233856-5 (Version None)
Quarter: 2012Q1

REPORT INFORMATION
  Report Type: 
  Country: None (occurrence: None)
  Receive Date: 20120326
  Receipt Date: 20120319
  Transmission Date: 20120608
  Serious: Yes (Hospitalization, Other)
  Sender: FDA-Public Use
  Company Number: US-BAYER-2011-107406

PATIENT
  Age: 29 Year
  Sex: Female
  Weight: 63.492 kg

DRUGS (8)
  1. ANTI-APPETITE FORMULA [Concomitant]
  2. DROSPIRENONE AND ETHINYL ESTRADIOL [Suspect]
     Indication: PREMENSTRUAL SYNDROME
  3. YAZ [Suspect]
     Indication: PREMENSTRUAL SYNDROME
     Dosage: UNK
     Dates: start: 20030101, end: 20101201
  4. YASMIN [Suspect]
     Indication: PREMENSTRUAL SYNDROME
     Dosage: UNK
     Dates: start: 20030101, end: 20101201
  5. MULTI-VITAMINS [Concomitant]
  6. VICODIN [Concomitant]
  7. ANTACIDS [Concomitant]
  8. NAPROXEN (ALEVE) [Concomitant]

REACTIONS (5)
  - GALLBLADDER DISORDER [None]
  - INJURY [None]
  - DEFORMITY [None]
  - CHOLECYSTITIS CHRONIC [None]
  - PAIN [None]
